FAERS Safety Report 12951129 (Version 3)
Quarter: 2016Q4

REPORT INFORMATION
  Report Type: Spontaneous
  Country: US (occurrence: US)
  Receive Date: 20161116
  Receipt Date: 20161215
  Transmission Date: 20170207
  Serious: Yes (Other)
  Sender: FDA-Public Use
  Company Number: US-BEH-2016075235

PATIENT
  Age: 34 Year
  Sex: Female

DRUGS (1)
  1. STIMATE [Suspect]
     Active Substance: DESMOPRESSIN ACETATE
     Indication: VON WILLEBRAND^S DISEASE
     Dosage: 1 SPRAY EVERY 24 HOURS IN EACH NOSTRIL
     Route: 045
     Dates: start: 20161121

REACTIONS (3)
  - Epistaxis [Recovered/Resolved]
  - Gingival bleeding [Recovered/Resolved]
  - Skin haemorrhage [Recovered/Resolved]

NARRATIVE: CASE EVENT DATE: 20161124
